FAERS Safety Report 5944066-6 (Version None)
Quarter: 2008Q4

REPORT INFORMATION
  Report Type: 
  Country: None (occurrence: None)
  Receive Date: 20081106
  Receipt Date: 20081028
  Transmission Date: 20090506
  Serious: No
  Sender: FDA-Public Use
  Company Number: US-B.I. PHARMACEUTICALS,INC./RIDGEFIELD-2008-BP-16543BP

PATIENT
  Sex: Female

DRUGS (8)
  1. SPIRIVA [Suspect]
     Indication: CHRONIC OBSTRUCTIVE PULMONARY DISEASE
     Dosage: 18MCG
     Route: 055
  2. ALBUTEROL [Concomitant]
  3. OXYGEN [Concomitant]
  4. ADVAIR DISKUS 100/50 [Concomitant]
     Dosage: 4PUF
  5. ZYRTEC [Concomitant]
  6. SERTRALINE [Concomitant]
     Indication: ANXIETY
     Dosage: 50MG
  7. MUCINEX [Concomitant]
  8. FOSAMAX [Concomitant]

REACTIONS (3)
  - DYSPNOEA [None]
  - MUSCULOSKELETAL PAIN [None]
  - PAIN IN EXTREMITY [None]
